FAERS Safety Report 8394777 (Version 8)
Quarter: 2012Q4

REPORT INFORMATION
  Report Type: 
  Country: US (occurrence: US)
  Receive Date: 20120207
  Receipt Date: 20121017
  Transmission Date: 20130627
  Serious: Yes (Hospitalization, Other)
  Sender: FDA-Public Use
  Company Number: US-MERCK-1202USA00896

PATIENT
  Age: 58 None

DRUGS (6)
  1. FOSAMAX [Suspect]
     Indication: OSTEOPENIA
     Dosage: 70 mg, QW
     Route: 048
     Dates: start: 20020920, end: 20071208
  2. FOSAMAX [Suspect]
     Dosage: 10 mg, qd
     Route: 048
  3. FOSAMAX [Suspect]
     Indication: OSTEOPENIA
     Dosage: 70 mg, QW
     Route: 048
     Dates: start: 20080407, end: 20110210
  4. CALCIUM (UNSPECIFIED) [Concomitant]
     Dosage: 1200-1500
  5. FOSAMAX [Suspect]
     Indication: OSTEOPENIA
     Dosage: 70 mg, UNK
     Route: 048
     Dates: start: 20080407, end: 20110210
  6. BONIVA [Concomitant]
     Indication: OSTEOPENIA

REACTIONS (22)
  - Intramedullary rod insertion [Unknown]
  - Femur fracture [Unknown]
  - Low turnover osteopathy [Unknown]
  - Hypercalcaemia [Unknown]
  - Osteoporosis [Unknown]
  - Oestrogen deficiency [Unknown]
  - Body height decreased [Unknown]
  - Joint dislocation [Unknown]
  - Breast pain [Unknown]
  - Vulvovaginal candidiasis [Unknown]
  - Costochondritis [Unknown]
  - Urine analysis abnormal [Unknown]
  - Vulvovaginal dryness [Unknown]
  - Hyperparathyroidism [Unknown]
  - Tendonitis [Unknown]
  - Eye pruritus [Unknown]
  - Temperature intolerance [Unknown]
  - Upper respiratory tract infection [Unknown]
  - Rib fracture [Unknown]
  - Fall [Unknown]
  - Constipation [Unknown]
  - Abdominal distension [Unknown]
